FAERS Safety Report 10137918 (Version 2)
Quarter: 2014Q2

REPORT INFORMATION
  Report Type: Spontaneous
  Country: US (occurrence: None)
  Receive Date: 20140422
  Receipt Date: 20140429
  Transmission Date: 20141212
  Serious: Yes (Life-Threatening, Hospitalization, Disabling, Other)
  Sender: FDA-Public Use
  Company Number: 003-170

PATIENT
  Age: 55 Year
  Sex: Female
  Weight: 70.31 kg

DRUGS (2)
  1. CROFAB [Suspect]
     Indication: SNAKE BITE
     Dates: start: 20100728, end: 20130806
  2. LISINOPRIL HCTZ [Concomitant]

REACTIONS (20)
  - Blood pressure decreased [None]
  - Skin graft [None]
  - Peripheral swelling [None]
  - Skin graft failure [None]
  - Extremity necrosis [None]
  - Peripheral swelling [None]
  - Weight increased [None]
  - Depression [None]
  - Arthralgia [None]
  - Pain in extremity [None]
  - Osteoarthritis [None]
  - Skin discolouration [None]
  - Haemorrhage [None]
  - Insomnia [None]
  - Extremity contracture [None]
  - Fatigue [None]
  - Dyspnoea [None]
  - Road traffic accident [None]
  - Unevaluable event [None]
  - Finger amputation [None]
